FAERS Safety Report 25732149 (Version 1)
Quarter: 2025Q3

REPORT INFORMATION
  Report Type: Spontaneous
  Country: US (occurrence: None)
  Receive Date: 20250827
  Receipt Date: 20250827
  Transmission Date: 20251021
  Serious: No
  Sender: FDA-CTU
  Company Number: None

PATIENT
  Age: 35 Year
  Sex: Female
  Weight: 63 kg

DRUGS (3)
  1. DUPIXENT [Suspect]
     Active Substance: DUPILUMAB
     Indication: Dermatitis atopic
     Route: 058
     Dates: start: 20241219
  2. Escitalopram Oxalate Tab [Concomitant]
  3. LORAZEPAM [Concomitant]
     Active Substance: LORAZEPAM
     Dates: start: 20250205

REACTIONS (2)
  - Alopecia [None]
  - Paradoxical drug reaction [None]

NARRATIVE: CASE EVENT DATE: 20250827
